FAERS Safety Report 4870763-X (Version None)
Quarter: 2006Q1

REPORT INFORMATION
  Report Type: 
  Country: None (occurrence: None)
  Receive Date: 20060103
  Receipt Date: 20051005
  Transmission Date: 20060701
  Serious: Yes (Death, Hospitalization)
  Sender: FDA-Public Use
  Company Number: US-MERCK-0510USA04097

PATIENT
  Age: 65 Year
  Sex: Female

DRUGS (1)
  1. VIOXX [Suspect]
     Indication: ARTHRITIS
     Route: 048
     Dates: end: 20000503

REACTIONS (4)
  - CARDIOVASCULAR DISORDER [None]
  - CHEST PAIN [None]
  - GASTROINTESTINAL HAEMORRHAGE [None]
  - VOMITING [None]
